FAERS Safety Report 22291720 (Version 1)
Quarter: 2023Q2

REPORT INFORMATION
  Report Type: Spontaneous
  Country: US (occurrence: None)
  Receive Date: 20230505
  Receipt Date: 20230505
  Transmission Date: 20230722
  Serious: Yes (unspecified)
  Sender: FDA-Public Use
  Company Number: None

PATIENT
  Age: 40 Year
  Sex: Female
  Weight: 63.9 kg

DRUGS (9)
  1. SEMAGLUTIDE [Suspect]
     Active Substance: SEMAGLUTIDE
     Indication: Weight decreased
     Dosage: OTHER FREQUENCY : ONCE A WEEK;?
     Route: 058
     Dates: start: 20230410, end: 20230417
  2. PRISTIQ EXTENDED-RELEASE [Concomitant]
     Active Substance: DESVENLAFAXINE SUCCINATE
  3. MIRTAZAPINE [Concomitant]
     Active Substance: MIRTAZAPINE
  4. BUSPIRONE [Concomitant]
     Active Substance: BUSPIRONE HYDROCHLORIDE
  5. LORAZEPAM [Concomitant]
     Active Substance: LORAZEPAM
  6. ESTRADIOL [Concomitant]
     Active Substance: ESTRADIOL
  7. CLARITIN [Concomitant]
     Active Substance: LORATADINE
  8. VITAMIN D [Concomitant]
     Active Substance: VITAMIN D NOS
  9. OMEGA 3 [Concomitant]
     Active Substance: CAPSAICIN

REACTIONS (12)
  - Anxiety [None]
  - Panic attack [None]
  - Palpitations [None]
  - Chest pain [None]
  - Paraesthesia [None]
  - Hypoaesthesia [None]
  - Middle insomnia [None]
  - Crying [None]
  - Fear [None]
  - Restlessness [None]
  - Feeling abnormal [None]
  - Suicidal ideation [None]

NARRATIVE: CASE EVENT DATE: 20230413
